FAERS Safety Report 21615213 (Version 1)
Quarter: 2022Q4

REPORT INFORMATION
  Report Type: Spontaneous
  Country: IT (occurrence: IT)
  Receive Date: 20221118
  Receipt Date: 20221118
  Transmission Date: 20230113
  Serious: Yes (Other)
  Sender: FDA-Public Use
  Company Number: IT-ROCHE-3206090

PATIENT
  Age: 82 Year
  Sex: Female

DRUGS (9)
  1. BEVACIZUMAB [Suspect]
     Active Substance: BEVACIZUMAB
     Indication: Hepatocellular carcinoma
     Dosage: 15 MILLIGRAM PER KILOGRAM, Q2WK
     Route: 065
     Dates: start: 20220530
  2. ATEZOLIZUMAB [Suspect]
     Active Substance: ATEZOLIZUMAB
     Indication: Hepatocellular carcinoma
     Dosage: 1200 MILLIGRAM
     Route: 065
     Dates: start: 20220530, end: 20220620
  3. ASPIRIN [Concomitant]
     Active Substance: ASPIRIN
     Dosage: 100 MILLIGRAM
  4. METFORMIN [Concomitant]
     Active Substance: METFORMIN HYDROCHLORIDE
     Indication: Diabetes mellitus
     Dosage: 500 MILLIGRAM
  5. BISOPROLOL [Concomitant]
     Active Substance: BISOPROLOL
     Indication: Liver disorder
     Dosage: 1.25 MILLIGRAM
  6. LEVOTHYROXINE SODIUM [Concomitant]
     Active Substance: LEVOTHYROXINE SODIUM
     Indication: Hypothyroidism
     Dosage: 7.5 MICROGRAM
  7. HYDROCHLOROTHIAZIDE\LOSARTAN POTASSIUM [Concomitant]
     Active Substance: HYDROCHLOROTHIAZIDE\LOSARTAN POTASSIUM
     Indication: Liver disorder
     Dosage: UNK
  8. TRIAZOLAM [Concomitant]
     Active Substance: TRIAZOLAM
     Dosage: 0.38 MILLIGRAM
  9. INTERFERON [Concomitant]
     Active Substance: INTERFERON
     Indication: Hepatitis C
     Dosage: UNK
     Dates: start: 2004

REACTIONS (7)
  - Cerebral haematoma [Recovering/Resolving]
  - Periorbital haematoma [Recovering/Resolving]
  - Hyponatraemia [Unknown]
  - Bundle branch block left [Unknown]
  - Conversion disorder [Unknown]
  - Hypertension [Unknown]
  - Off label use [Unknown]

NARRATIVE: CASE EVENT DATE: 20220530
